FAERS Safety Report 6638581-X (Version None)
Quarter: 2010Q1

REPORT INFORMATION
  Report Type: 
  Country: None (occurrence: None)
  Receive Date: 20100316
  Receipt Date: 20100316
  Transmission Date: 20100710
  Serious: Yes (Hospitalization)
  Sender: FDA-Public Use
  Company Number: None

PATIENT
  Sex: Female
  Weight: 58.8 kg

DRUGS (29)
  1. CYTARABINE [Suspect]
     Dosage: 39200 MG
  2. G-CSF (FILGRASTIM, AMGEN) [Suspect]
     Dosage: 1800 MG
  3. ELSPAR [Suspect]
     Dosage: 19600 MG
  4. ACETAMINOPHEN [Concomitant]
  5. ACYCLOVIR [Concomitant]
  6. AMIODARONE HCL [Concomitant]
  7. AMOPHOTERICIN [Concomitant]
  8. CALCIUM GLUCONATE [Concomitant]
  9. CEFEPIME [Concomitant]
  10. D5 1/2 NS 1000 ML WITH KCL [Concomitant]
  11. DOPAMINE HCL [Concomitant]
  12. EPINEPHRINE [Concomitant]
  13. FENTANYL [Concomitant]
  14. FUROSEMIDE [Concomitant]
  15. GENTAMICIN [Concomitant]
  16. HYDROCORTISONE [Concomitant]
  17. HYDROMORPHONE HCL [Concomitant]
  18. LORAZEPAM [Concomitant]
  19. MAGNESIUM SULFATE [Concomitant]
  20. MEROPENEM [Concomitant]
  21. METRONIDAZOLE [Concomitant]
  22. MIDAZOLAM HCL [Concomitant]
  23. MORPHINE [Concomitant]
  24. ONDANSETRON [Concomitant]
  25. SODIUM BICARBONATE [Concomitant]
  26. SODIUM CHLORIDE [Concomitant]
  27. VANCOMYCIN [Concomitant]
  28. VECURONIUM [Concomitant]
  29. VITAMIN K TAB [Concomitant]

REACTIONS (12)
  - ACUTE RESPIRATORY DISTRESS SYNDROME [None]
  - COLITIS [None]
  - DIASTOLIC HYPOTENSION [None]
  - EXTRASYSTOLES [None]
  - FEBRILE NEUTROPENIA [None]
  - MENTAL STATUS CHANGES [None]
  - NO THERAPEUTIC RESPONSE [None]
  - PANCYTOPENIA [None]
  - PULMONARY OEDEMA [None]
  - SEPTIC SHOCK [None]
  - TACHYARRHYTHMIA [None]
  - VENTRICULAR TACHYCARDIA [None]
